FAERS Safety Report 5412645-0 (Version None)
Quarter: 2007Q3

REPORT INFORMATION
  Report Type: 
  Country: None (occurrence: None)
  Receive Date: 20070813
  Receipt Date: 20070730
  Transmission Date: 20080115
  Serious: Yes (Hospitalization)
  Sender: FDA-Public Use
  Company Number: US-ROCHE-464117

PATIENT
  Age: 56 Year
  Sex: Female
  Weight: 56.2 kg

DRUGS (1)
  1. BONIVA [Suspect]
     Indication: OSTEOPOROSIS
     Route: 042
     Dates: start: 20060912, end: 20060912

REACTIONS (14)
  - AXILLARY PAIN [None]
  - BONE PAIN [None]
  - BURNING SENSATION [None]
  - DIZZINESS [None]
  - DYSPNOEA [None]
  - ERYTHEMA [None]
  - FATIGUE [None]
  - HEADACHE [None]
  - HYPOAESTHESIA [None]
  - MUSCULOSKELETAL PAIN [None]
  - OEDEMA PERIPHERAL [None]
  - OESOPHAGEAL STENOSIS [None]
  - PAIN IN EXTREMITY [None]
  - SPEECH DISORDER [None]
